FAERS Safety Report 6171298-7 (Version None)
Quarter: 2009Q2

REPORT INFORMATION
  Report Type: 
  Country: None (occurrence: None)
  Receive Date: 20090428
  Receipt Date: 20090428
  Transmission Date: 20091009
  Serious: No
  Sender: FDA-Public Use
  Company Number: None

PATIENT
  Age: 59 Year
  Sex: Female
  Weight: 48.0813 kg

DRUGS (1)
  1. NEFAZODONE HCL [Suspect]
     Indication: DEPRESSION
     Dosage: 150 MGS TWICE A DAY MORNING AND NIGHT
     Dates: start: 19930308, end: 20090424

REACTIONS (4)
  - ABDOMINAL DISCOMFORT [None]
  - GENITAL BURNING SENSATION [None]
  - MUSCLE SPASMS [None]
  - MUSCLE TWITCHING [None]
